FAERS Safety Report 18637541 (Version 4)
Quarter: 2022Q2

REPORT INFORMATION
  Report Type: Spontaneous
  Country: US (occurrence: US)
  Receive Date: 20201218
  Receipt Date: 20220519
  Transmission Date: 20220721
  Serious: Yes (Hospitalization)
  Sender: FDA-Public Use
  Company Number: NVSC2020US292832

PATIENT
  Sex: Male

DRUGS (1)
  1. KYMRIAH [Suspect]
     Active Substance: TISAGENLECLEUCEL
     Indication: Diffuse large B-cell lymphoma
     Dosage: UNK, ONCE/SINGLE (3.8E8 CAR-POSITIVE VIABLE T CELLS)
     Route: 042

REACTIONS (4)
  - SARS-CoV-2 test positive [Unknown]
  - Fatigue [Unknown]
  - Confusional state [Unknown]
  - Inflammatory marker increased [Unknown]
